FAERS Safety Report 9730890 (Version 1)
Quarter: 2013Q4

REPORT INFORMATION
  Report Type: Spontaneous
  Country: US (occurrence: US)
  Receive Date: 20131205
  Receipt Date: 20131205
  Transmission Date: 20140711
  Serious: No
  Sender: FDA-Public Use
  Company Number: US-B.I. PHARMACEUTICALS,INC./RIDGEFIELD-2013-BI-38776BP

PATIENT
  Sex: Female
  Weight: 46 kg

DRUGS (8)
  1. COMBIVENT [Suspect]
     Indication: CHRONIC OBSTRUCTIVE PULMONARY DISEASE
     Dosage: STRENGTH: 20 MCG / 100 MCG; DAILY DOSE: 80 MCG/400 MCG
     Route: 055
  2. FUROSEMIDE [Concomitant]
     Indication: FLUID RETENTION
     Dosage: 40 MG
     Route: 048
  3. ATENOLOL [Concomitant]
     Indication: HEART RATE IRREGULAR
     Dosage: 25 MG
     Route: 048
  4. PRESERVISION [Concomitant]
     Route: 048
  5. BIOTIN [Concomitant]
     Indication: ALOPECIA
     Dosage: 5000 MCG
     Route: 048
  6. MUCINEX [Concomitant]
     Dosage: 1200 MG
     Route: 048
  7. MAGNESIUM [Concomitant]
     Route: 048
  8. FLAXSEED OIL [Concomitant]
     Dosage: 2400 MG
     Route: 048

REACTIONS (4)
  - Somnolence [Not Recovered/Not Resolved]
  - Pain [Not Recovered/Not Resolved]
  - Myalgia [Not Recovered/Not Resolved]
  - Asthenopia [Not Recovered/Not Resolved]
